FAERS Safety Report 5117328-2 (Version None)
Quarter: 2006Q3

REPORT INFORMATION
  Report Type: 
  Country: None (occurrence: None)
  Receive Date: 20060929
  Receipt Date: 20060602
  Transmission Date: 20061208
  Serious: Yes (Life-Threatening, Other)
  Sender: FDA-Public Use
  Company Number: 2006CG00981

PATIENT
  Age: 19 Month
  Sex: Female
  Weight: 9.8 kg

DRUGS (4)
  1. OMEPRAZOLE [Suspect]
     Indication: GASTROOESOPHAGEAL REFLUX DISEASE
     Route: 048
     Dates: start: 20051001
  2. OMEPRAZOLE [Suspect]
     Route: 048
  3. GENOTONORM [Suspect]
     Indication: RENAL FAILURE
     Route: 030
     Dates: start: 20060301, end: 20060701
  4. PROPULSID [Suspect]
     Indication: GASTROOESOPHAGEAL REFLUX DISEASE
     Route: 048
     Dates: start: 20060301, end: 20060701

REACTIONS (2)
  - HIRSUTISM [None]
  - HYPERTROPHIC CARDIOMYOPATHY [None]
